FAERS Safety Report 8708939 (Version 3)
Quarter: 2015Q1

REPORT INFORMATION
  Report Type: Report from Study
  Country: US (occurrence: US)
  Receive Date: 20120806
  Receipt Date: 20150317
  Transmission Date: 20150721
  Serious: Yes (Death)
  Sender: FDA-Public Use
  Company Number: US-ROCHE-1096637

PATIENT
  Sex: Female
  Weight: 109.87 kg

DRUGS (8)
  1. CAMPTOSAR [Concomitant]
     Active Substance: IRINOTECAN HYDROCHLORIDE
     Route: 042
  2. AVASTIN [Suspect]
     Active Substance: BEVACIZUMAB
     Route: 042
  3. ANZEMET [Concomitant]
     Active Substance: DOLASETRON MESYLATE
     Route: 065
  4. AVASTIN [Suspect]
     Active Substance: BEVACIZUMAB
     Indication: COLON CANCER
     Route: 042
  5. ALOXI [Concomitant]
     Active Substance: PALONOSETRON HYDROCHLORIDE
     Route: 042
  6. DECADRON [Concomitant]
     Active Substance: DEXAMETHASONE
     Route: 042
  7. 5-FLUOROURACIL [Concomitant]
     Active Substance: FLUOROURACIL
     Route: 042
  8. ATROPINE [Concomitant]
     Active Substance: ATROPINE
     Route: 042

REACTIONS (1)
  - Colon cancer [Fatal]
